FAERS Safety Report 8247617-4 (Version None)
Quarter: 2012Q1

REPORT INFORMATION
  Report Type: 
  Country: None (occurrence: None)
  Receive Date: 20120330
  Receipt Date: 20120322
  Transmission Date: 20120608
  Serious: Yes (Other)
  Sender: FDA-Public Use
  Company Number: US-JNJFOC-20120311078

PATIENT
  Sex: Female
  Weight: 48.54 kg

DRUGS (4)
  1. TOPAMAX [Suspect]
     Route: 048
     Dates: start: 20080101, end: 20080101
  2. TOPAMAX [Suspect]
     Indication: MIGRAINE PROPHYLAXIS
     Route: 048
     Dates: start: 20110101
  3. TOPAMAX [Suspect]
     Dosage: ONE AND A HALF 25MG TABLET
     Route: 048
     Dates: start: 20110101, end: 20110101
  4. LIPITOR [Concomitant]
     Indication: BLOOD CHOLESTEROL INCREASED
     Route: 048

REACTIONS (5)
  - WEIGHT DECREASED [None]
  - FATIGUE [None]
  - WRONG TECHNIQUE IN DRUG USAGE PROCESS [None]
  - BEDRIDDEN [None]
  - DRUG PRESCRIBING ERROR [None]
